FAERS Safety Report 18013360 (Version 1)
Quarter: 2020Q3

REPORT INFORMATION
  Report Type: Spontaneous
  Country: US (occurrence: US)
  Receive Date: 20200713
  Receipt Date: 20200713
  Transmission Date: 20201103
  Serious: No
  Sender: FDA-Public Use
  Company Number: US-SA-2020SA178706

PATIENT

DRUGS (1)
  1. LANTUS [Suspect]
     Active Substance: INSULIN GLARGINE
     Indication: TYPE 2 DIABETES MELLITUS
     Dosage: 32 IU, QD (AT NIGHT)
     Route: 065
     Dates: start: 2018

REACTIONS (3)
  - Injection site haemorrhage [Unknown]
  - Device operational issue [Unknown]
  - Injection site pain [Unknown]
